FAERS Safety Report 26011879 (Version 2)
Quarter: 2025Q4

REPORT INFORMATION
  Report Type: Spontaneous
  Country: US (occurrence: US)
  Receive Date: 20251107
  Receipt Date: 20251110
  Transmission Date: 20260118
  Serious: No
  Sender: Kenvue
  Company Number: US-KENVUE-20251101120

PATIENT
  Age: 36 Year
  Sex: Female

DRUGS (1)
  1. NEUTROGENA OIL FREE ACNE WASH PINK GRAPEFRUIT FACIAL CLEANSER [Suspect]
     Active Substance: SALICYLIC ACID
     Indication: Removal of inert matter from skin or subcutaneous tissue
     Dosage: 1 PUMP ONCE A DAY - ONCE AT NIGHT THEN THE NEXT MORNING
     Route: 061
     Dates: start: 20251021

REACTIONS (2)
  - Application site burn [Not Recovered/Not Resolved]
  - Application site reaction [Not Recovered/Not Resolved]

NARRATIVE: CASE EVENT DATE: 20251022
